FAERS Safety Report 7291035-2 (Version None)
Quarter: 2011Q1

REPORT INFORMATION
  Report Type: 
  Country: None (occurrence: None)
  Receive Date: 20110214
  Receipt Date: 20110208
  Transmission Date: 20110831
  Serious: Yes (Other)
  Sender: FDA-Public Use
  Company Number: US-JNJFOC-20110202818

PATIENT
  Sex: Male
  Weight: 91.17 kg

DRUGS (9)
  1. DURAGESIC-50 [Suspect]
     Indication: BACK PAIN
     Route: 062
  2. NORVASC [Concomitant]
     Indication: HYPERTENSION
     Dosage: 20-25MG
     Route: 048
  3. GABAPENTIN [Concomitant]
     Indication: NEURALGIA
     Route: 048
  4. NEXIUM [Concomitant]
     Indication: GASTROOESOPHAGEAL REFLUX DISEASE
     Dosage: 20-25MG
     Route: 048
  5. METAPROTERENOL SULFATE [Concomitant]
     Indication: BLOOD CHOLESTEROL
     Dosage: 20-25MG
     Route: 048
  6. QUINAPRIL [Concomitant]
     Indication: BLOOD CHOLESTEROL
     Dosage: 20-25MG
     Route: 048
  7. DURAGESIC-50 [Suspect]
     Route: 062
  8. OXYCODONE HCL [Concomitant]
     Indication: PAIN
     Route: 048
  9. GEMFIBROZIL [Concomitant]
     Indication: BLOOD CHOLESTEROL
     Dosage: 20-25MG
     Route: 048

REACTIONS (5)
  - EMOTIONAL DISORDER [None]
  - MUSCLE SPASMS [None]
  - WRONG TECHNIQUE IN DRUG USAGE PROCESS [None]
  - BACK PAIN [None]
  - PRODUCT ADHESION ISSUE [None]
